FAERS Safety Report 15777440 (Version 3)
Quarter: 2019Q3

REPORT INFORMATION
  Report Type: Spontaneous
  Country: US (occurrence: US)
  Receive Date: 20181231
  Receipt Date: 20190701
  Transmission Date: 20191004
  Serious: No
  Sender: FDA-Public Use
  Company Number: US-CLOVIS ONCOLOGY-CLO-2018-001620

PATIENT
  Age: 53 Year
  Sex: Female

DRUGS (2)
  1. RUBRACA [Suspect]
     Active Substance: RUCAPARIB CAMSYLATE
     Dosage: 600 MG, BID
     Route: 048
     Dates: start: 20181030
  2. RUBRACA [Suspect]
     Active Substance: RUCAPARIB CAMSYLATE
     Indication: OVARIAN CANCER
     Dosage: 600 MG, BID
     Route: 048
     Dates: start: 20181105

REACTIONS (16)
  - Blood bilirubin increased [Recovered/Resolved]
  - Tumour marker increased [Not Recovered/Not Resolved]
  - Insomnia [Recovering/Resolving]
  - Cough [Recovered/Resolved]
  - Chills [Recovered/Resolved]
  - White blood cell count increased [Recovered/Resolved]
  - Therapy partial responder [Unknown]
  - Scan abnormal [Unknown]
  - Dysgeusia [Recovering/Resolving]
  - Pain [Recovered/Resolved]
  - Initial insomnia [Unknown]
  - Carbohydrate antigen 125 increased [Unknown]
  - Influenza [Recovered/Resolved]
  - Liver function test increased [Recovered/Resolved]
  - Malaise [Not Recovered/Not Resolved]
  - Nasopharyngitis [Recovered/Resolved]

NARRATIVE: CASE EVENT DATE: 2018
